FAERS Safety Report 6185103-6 (Version None)
Quarter: 2009Q2

REPORT INFORMATION
  Report Type: 
  Country: None (occurrence: None)
  Receive Date: 20090507
  Receipt Date: 20090430
  Transmission Date: 20091009
  Serious: Yes (Death)
  Sender: FDA-Public Use
  Company Number: 2009-00894

PATIENT
  Age: 53 Year
  Sex: Female

DRUGS (13)
  1. VELCADE [Suspect]
     Indication: MULTIPLE MYELOMA
     Dates: start: 20090120, end: 20090227
  2. DEXAMETHASONE [Suspect]
     Indication: MULTIPLE MYELOMA
     Dosage: 20 MG
     Dates: start: 20090120, end: 20090228
  3. ROMIDEPSIN (DEPSIPEPTIDE) POWDER (EXCEPT [DPO]) [Suspect]
     Indication: MULTIPLE MYELOMA
     Dates: start: 20090120, end: 20090303
  4. DAPSONE [Concomitant]
  5. VALACYCLOVIR [Concomitant]
  6. RED BLOOD CELLS [Concomitant]
  7. DIPYRIDAMOLE [Concomitant]
  8. ROXITHROMYCIN (ROXITHROMYCIN) [Concomitant]
  9. OMEPRAZOLE [Concomitant]
  10. METOCLOPRAMIDE [Concomitant]
  11. ZOMETA [Concomitant]
  12. GRANISETRON  HCL [Concomitant]
  13. MAGNESIUM (MAGNESIUM) [Concomitant]

REACTIONS (2)
  - PULMONARY EMBOLISM [None]
  - SUDDEN DEATH [None]
